FAERS Safety Report 6016149-6 (Version None)
Quarter: 2008Q4

REPORT INFORMATION
  Report Type: 
  Country: None (occurrence: None)
  Receive Date: 20081222
  Receipt Date: 20081211
  Transmission Date: 20090506
  Serious: Yes (Other)
  Sender: FDA-Public Use
  Company Number: DE-PFIZER INC-2008152920

PATIENT

DRUGS (2)
  1. INSPRA [Suspect]
     Dosage: UNK
     Route: 048
     Dates: end: 20081215
  2. FUROSEMID [Concomitant]

REACTIONS (2)
  - FOOD AVERSION [None]
  - HALLUCINATION [None]
